FAERS Safety Report 20656599 (Version 1)
Quarter: 2022Q1

REPORT INFORMATION
  Report Type: Spontaneous
  Country: US (occurrence: US)
  Receive Date: 20220331
  Receipt Date: 20220331
  Transmission Date: 20220423
  Serious: No
  Sender: FDA-Public Use
  Company Number: US-SANOFI-01033834

PATIENT
  Age: 50 Year
  Sex: Female

DRUGS (1)
  1. DUPIXENT [Suspect]
     Active Substance: DUPILUMAB
     Indication: Eosinophil count abnormal
     Dosage: 300 MG, QOW

REACTIONS (7)
  - Skin swelling [Unknown]
  - Eye swelling [Unknown]
  - Eyelid margin crusting [Unknown]
  - Rash [Recovered/Resolved]
  - Eye pruritus [Unknown]
  - Dry eye [Unknown]
  - Product use in unapproved indication [Unknown]
